FAERS Safety Report 26110548 (Version 1)
Quarter: 2025Q4

REPORT INFORMATION
  Report Type: Spontaneous
  Country: GB (occurrence: GB)
  Receive Date: 20251202
  Receipt Date: 20251202
  Transmission Date: 20260119
  Serious: Yes (Hospitalization, Other)
  Sender: TEVA
  Company Number: GB-PHARMVIT-4556-04-ER25-RN1517

PATIENT
  Age: 20 Year
  Sex: Female

DRUGS (3)
  1. MIRTAZAPINE [Suspect]
     Active Substance: MIRTAZAPINE
     Indication: Product used for unknown indication
     Route: 065
  2. CODEINE [Suspect]
     Active Substance: CODEINE
     Indication: Product used for unknown indication
     Route: 065
  3. ACETAMINOPHEN [Suspect]
     Active Substance: ACETAMINOPHEN
     Indication: Product used for unknown indication
     Dosage: TIME INTERVAL: 68 TOTAL
     Route: 065

REACTIONS (10)
  - Intentional overdose [Recovered/Resolved]
  - Metabolic acidosis [Recovered/Resolved]
  - Hepatic encephalopathy [Recovered/Resolved]
  - Brain oedema [Recovered/Resolved]
  - Intracranial pressure increased [Recovered/Resolved]
  - Hypertransaminasaemia [Recovered/Resolved]
  - Cranial nerve paralysis [Recovered/Resolved]
  - Acute hepatic failure [Recovered/Resolved]
  - Hyperammonaemia [Recovered/Resolved]
  - Coagulopathy [Recovered/Resolved]
